FAERS Safety Report 9175781 (Version 1)
Quarter: 2013Q1

REPORT INFORMATION
  Report Type: Spontaneous
  Country: PT (occurrence: PT)
  Receive Date: 20130320
  Receipt Date: 20130320
  Transmission Date: 20140127
  Serious: Yes (Other)
  Sender: FDA-Public Use
  Company Number: PT-MYLANLABS-2013S1005373

PATIENT
  Age: 48 Year
  Sex: Female

DRUGS (6)
  1. QUETIAPINE [Suspect]
     Route: 065
  2. OLANZAPINE [Suspect]
     Route: 065
  3. PITAVASTATIN [Concomitant]
     Route: 065
  4. PREDNISONE [Concomitant]
     Indication: PEMPHIGOID
     Dosage: 1 MG/KG/DAY
     Route: 048
  5. IMMUNE GLOBULIN [Concomitant]
     Indication: PEMPHIGOID
     Dosage: 1 G/KG DAILY FOR 2 DAYS; THEN 0.5 G/KG/DAY FOR 4 DAYS
     Route: 042
  6. IMMUNE GLOBULIN [Concomitant]
     Indication: PEMPHIGOID
     Dosage: 0.5 G/KG/DAY FOR 4 DAYS
     Route: 042

REACTIONS (1)
  - Pemphigoid [Unknown]
